FAERS Safety Report 6505010-6 (Version None)
Quarter: 2009Q4

REPORT INFORMATION
  Report Type: 
  Country: None (occurrence: None)
  Receive Date: 20091218
  Receipt Date: 20091207
  Transmission Date: 20100525
  Serious: Yes (Other)
  Sender: FDA-Public Use
  Company Number: US-SANOFI-AVENTIS-2009SA007232

PATIENT
  Age: 39 Year
  Sex: Female

DRUGS (4)
  1. MULTAQ [Suspect]
     Indication: ATRIAL FIBRILLATION
     Route: 048
     Dates: start: 20090701
  2. DIOVAN [Concomitant]
     Indication: BLOOD PRESSURE
     Route: 048
     Dates: start: 20090701
  3. METFORMIN HCL [Concomitant]
     Route: 048
  4. LANTUS [Concomitant]
     Dosage: DOSE:45 UNIT(S)

REACTIONS (4)
  - ATRIAL FIBRILLATION [None]
  - COUGH [None]
  - FATIGUE [None]
  - THROAT IRRITATION [None]
